FAERS Safety Report 7227463 (Version 8)
Quarter: 2013Q4

REPORT INFORMATION
  Report Type: Spontaneous
  Country: US (occurrence: US)
  Receive Date: 20091222
  Receipt Date: 20131121
  Transmission Date: 20140711
  Serious: Yes (Hospitalization, Other)
  Sender: FDA-Public Use
  Company Number: US-ASTRAZENECA-2009UW10141

PATIENT
  Age: 77 Year
  Sex: Female

DRUGS (2)
  1. CRESTOR [Suspect]
     Indication: BLOOD CHOLESTEROL INCREASED
     Route: 048
  2. CRESTOR [Suspect]
     Indication: BLOOD CHOLESTEROL INCREASED
     Route: 048

REACTIONS (14)
  - Renal failure chronic [Unknown]
  - Transient ischaemic attack [Unknown]
  - Peripheral vascular disorder [Unknown]
  - Osteoporosis [Unknown]
  - Tremor [Unknown]
  - Escherichia infection [Unknown]
  - Dysgraphia [Unknown]
  - Local swelling [Unknown]
  - Angiopathy [Unknown]
  - Ear disorder [Unknown]
  - Muscle spasms [Unknown]
  - Blood cholesterol increased [Unknown]
  - Pain in extremity [Recovered/Resolved]
  - Drug dose omission [Recovered/Resolved]
